FAERS Safety Report 6289912-4 (Version None)
Quarter: 2009Q3

REPORT INFORMATION
  Report Type: 
  Country: None (occurrence: None)
  Receive Date: 20090730
  Receipt Date: 20090203
  Transmission Date: 20100115
  Serious: Yes (Other)
  Sender: FDA-Public Use
  Company Number: US-BRISTOL-MYERS SQUIBB COMPANY-14335236

PATIENT
  Sex: Male

DRUGS (6)
  1. COUMADIN [Suspect]
     Indication: STENT PLACEMENT
     Route: 065
  2. COUMADIN [Suspect]
     Indication: ATRIAL FIBRILLATION
     Route: 065
  3. PLAVIX [Suspect]
     Indication: ATRIAL FIBRILLATION
     Route: 048
  4. PLAVIX [Suspect]
     Indication: STENT PLACEMENT
     Route: 048
  5. ASPIRIN [Suspect]
     Indication: STENT PLACEMENT
  6. ASPIRIN [Suspect]
     Indication: ATRIAL FIBRILLATION

REACTIONS (1)
  - HAEMORRHAGE [None]
